FAERS Safety Report 8393811-1 (Version None)
Quarter: 2012Q2

REPORT INFORMATION
  Report Type: 
  Country: None (occurrence: None)
  Receive Date: 20120530
  Receipt Date: 20120516
  Transmission Date: 20120825
  Serious: Yes (Death, Life-Threatening, Hospitalization, Other)
  Sender: FDA-Public Use
  Company Number: BR-RANBAXY-2012RR-53226

PATIENT
  Age: 47 Year
  Sex: Female
  Weight: 68 kg

DRUGS (10)
  1. TRETINOIN [Suspect]
     Indication: ACUTE PROMYELOCYTIC LEUKAEMIA
     Dosage: 40 MG/M2/DAY CONTINUOUSLY
     Route: 048
  2. METAMIZOLE [Suspect]
     Indication: FEBRILE NEUTROPENIA
     Dosage: 500 MG
     Route: 048
  3. FLUCONAZOLE [Suspect]
     Indication: CANDIDIASIS
     Dosage: 200 MG/DAY
     Route: 048
  4. MITOXANTRONE [Suspect]
     Indication: ACUTE PROMYELOCYTIC LEUKAEMIA
     Dosage: 20 MG/M2/DAY
     Route: 042
  5. AMPHOTERICIN B [Suspect]
     Indication: CANDIDIASIS
     Dosage: 30 MG/DAY, 6 HOURS OF INFUSION
     Route: 042
  6. MEROPENEM [Concomitant]
     Indication: FEBRILE NEUTROPENIA
     Dosage: 1 G, TID
     Route: 042
  7. CYTARABINE [Suspect]
     Indication: ACUTE PROMYELOCYTIC LEUKAEMIA
     Dosage: 370 MG/M2/DAY
     Route: 042
  8. METHOTREXATE [Concomitant]
     Indication: ACUTE PROMYELOCYTIC LEUKAEMIA
     Dosage: 7.5 MG/M2/DAY
     Route: 042
  9. CEFEPIME [Suspect]
     Indication: FEBRILE NEUTROPENIA
     Dosage: 2 G, EVERY EIGHT HOURS
     Route: 042
  10. TRETINOIN [Concomitant]
     Dosage: 20 MG/M2/DAY
     Route: 048

REACTIONS (5)
  - RENAL FAILURE ACUTE [None]
  - HEPATOMEGALY [None]
  - CANDIDIASIS [None]
  - RESPIRATORY DISORDER [None]
  - RESPIRATORY TRACT HAEMORRHAGE [None]
